FAERS Safety Report 8692592 (Version 2)
Quarter: 2012Q4

REPORT INFORMATION
  Report Type: 
  Country: US (occurrence: US)
  Receive Date: 20120730
  Receipt Date: 20121112
  Transmission Date: 20130627
  Serious: No
  Sender: FDA-Public Use
  Company Number: US-009507513-1207USA011226

PATIENT
  Sex: Female

DRUGS (2)
  1. ZEGERID OTC CAPSULES [Suspect]
     Indication: PRODUCT USED FOR UNKNOWN INDICATION
     Dosage: 40 mg, qd
     Route: 048
  2. ZEGERID OTC CAPSULES [Suspect]
     Indication: MEDICAL OBSERVATION

REACTIONS (2)
  - Overdose [Unknown]
  - Incorrect drug administration duration [Unknown]
